FAERS Safety Report 5711360-3 (Version None)
Quarter: 2008Q2

REPORT INFORMATION
  Report Type: 
  Country: None (occurrence: None)
  Receive Date: 20080421
  Receipt Date: 20080414
  Transmission Date: 20081010
  Serious: Yes (Hospitalization)
  Sender: FDA-Public Use
  Company Number: B0516907A

PATIENT
  Age: 57 Year
  Sex: Female
  Weight: 82 kg

DRUGS (4)
  1. LAPATINIB [Suspect]
     Dosage: 1250MG PER DAY
     Route: 048
     Dates: start: 20071206
  2. CAPECITABINE [Suspect]
     Dosage: 2000MGM2 TWICE PER DAY
     Route: 048
     Dates: start: 20071206, end: 20080403
  3. ZESTRIL [Concomitant]
     Indication: HYPERTENSION
     Dosage: 20MG PER DAY
     Route: 048
  4. TILDIEM [Concomitant]
     Indication: HYPERTENSION
     Dosage: 200MG PER DAY
     Route: 048
     Dates: start: 20080208

REACTIONS (1)
  - CEREBROVASCULAR ACCIDENT [None]
